FAERS Safety Report 6165346-8 (Version None)
Quarter: 2009Q2

REPORT INFORMATION
  Report Type: 
  Country: None (occurrence: None)
  Receive Date: 20090423
  Receipt Date: 20090416
  Transmission Date: 20091009
  Serious: Yes (Other)
  Sender: FDA-Public Use
  Company Number: FI-BAYER-200918577GPV

PATIENT
  Age: 48 Year
  Sex: Female

DRUGS (2)
  1. BETAFERON [Suspect]
     Indication: MULTIPLE SCLEROSIS
     Route: 058
     Dates: start: 20081101, end: 20081201
  2. METHOTREXATE [Concomitant]
     Indication: SJOGREN'S SYNDROME

REACTIONS (5)
  - HERPES ZOSTER [None]
  - MYALGIA [None]
  - NASOPHARYNGITIS [None]
  - NIGHT SWEATS [None]
  - PARALYSIS [None]
